FAERS Safety Report 8259495-8 (Version None)
Quarter: 2012Q2

REPORT INFORMATION
  Report Type: 
  Country: None (occurrence: None)
  Receive Date: 20120404
  Receipt Date: 20120327
  Transmission Date: 20120825
  Serious: Yes (Hospitalization)
  Sender: FDA-Public Use
  Company Number: NL-TEVA-331008ISR

PATIENT
  Sex: Female
  Weight: 78 kg

DRUGS (2)
  1. TAMOXIFEN CITRATE [Suspect]
     Indication: BREAST CANCER FEMALE
     Dosage: 20 MILLIGRAM;
     Dates: start: 20110328
  2. METOPROLOL TARTRATE [Concomitant]

REACTIONS (1)
  - CEREBRAL ARTERY EMBOLISM [None]
